FAERS Safety Report 24322755 (Version 3)
Quarter: 2024Q3

REPORT INFORMATION
  Report Type: Spontaneous
  Country: US (occurrence: US)
  Receive Date: 20240916
  Receipt Date: 20240927
  Transmission Date: 20241016
  Serious: No
  Sender: AMGEN
  Company Number: US-AMGEN-USASP2024182324

PATIENT
  Age: 55 Year
  Sex: Female
  Weight: 85 kg

DRUGS (2)
  1. IMDELLTRA [Suspect]
     Active Substance: TARLATAMAB-DLLE
     Indication: Lung neoplasm malignant
     Dosage: 10 MILLIGRAM, D1
     Route: 042
     Dates: start: 20240902, end: 20240902
  2. IMDELLTRA [Suspect]
     Active Substance: TARLATAMAB-DLLE
     Dosage: 10 MILLIGRAM, D8 THEN ON D15, D28
     Route: 042
     Dates: start: 20240910

REACTIONS (4)
  - Product preparation error [Unknown]
  - Product administration error [Unknown]
  - Product communication issue [Unknown]
  - Off label use [Unknown]

NARRATIVE: CASE EVENT DATE: 20240902
